FAERS Safety Report 9884880 (Version 3)
Quarter: 2015Q2

REPORT INFORMATION
  Report Type: Spontaneous
  Country: US (occurrence: US)
  Receive Date: 20140210
  Receipt Date: 20150416
  Transmission Date: 20150821
  Serious: Yes (Other)
  Sender: FDA-Public Use
  Company Number: US-BAYER-2014-019089

PATIENT
  Age: 20 Year
  Sex: Female
  Weight: 43.84 kg

DRUGS (1)
  1. MIRENA [Suspect]
     Active Substance: LEVONORGESTREL
     Indication: CONTRACEPTION
     Dosage: 20 MCG/24HR, CONT
     Route: 015
     Dates: start: 20100729, end: 20121107

REACTIONS (11)
  - Uterine perforation [Not Recovered/Not Resolved]
  - Infection [Not Recovered/Not Resolved]
  - Emotional distress [None]
  - Scar [None]
  - Device issue [Not Recovered/Not Resolved]
  - Injury [Not Recovered/Not Resolved]
  - Pain [Not Recovered/Not Resolved]
  - Depression [None]
  - Ovarian cyst [Not Recovered/Not Resolved]
  - Anxiety [None]
  - Device difficult to use [None]

NARRATIVE: CASE EVENT DATE: 2010
